FAERS Safety Report 8325843-3 (Version None)
Quarter: 2012Q2

REPORT INFORMATION
  Report Type: 
  Country: None (occurrence: None)
  Receive Date: 20120501
  Receipt Date: 20120419
  Transmission Date: 20120825
  Serious: No
  Sender: FDA-Public Use
  Company Number: US-BIOGENIDEC-2012BI013735

PATIENT
  Age: 46 Year
  Sex: Female

DRUGS (3)
  1. TYSABRI [Suspect]
     Indication: MULTIPLE SCLEROSIS
     Route: 042
     Dates: start: 20091102
  2. PROVIGIL [Concomitant]
     Indication: HYPERVIGILANCE
     Dates: start: 20120301
  3. NUVIGIL [Concomitant]
     Indication: HYPERVIGILANCE
     Dates: end: 20120301

REACTIONS (3)
  - MENTAL IMPAIRMENT [None]
  - ASTHENIA [None]
  - MEMORY IMPAIRMENT [None]
